FAERS Safety Report 18065957 (Version 1)
Quarter: 2020Q3

REPORT INFORMATION
  Report Type: Spontaneous
  Country: US (occurrence: US)
  Receive Date: 20200724
  Receipt Date: 20200724
  Transmission Date: 20201103
  Serious: Yes (Disabling)
  Sender: FDA-Public Use
  Company Number: None

PATIENT
  Age: 77 Year
  Sex: Male
  Weight: 113.4 kg

DRUGS (7)
  1. QUINAPRIL. [Concomitant]
     Active Substance: QUINAPRIL
  2. GLIMEPIRIDE. [Concomitant]
     Active Substance: GLIMEPIRIDE
  3. METFORMIN [Suspect]
     Active Substance: METFORMIN HYDROCHLORIDE
     Indication: TYPE 2 DIABETES MELLITUS
     Dosage: ?          QUANTITY:360 TABLET(S);?
     Route: 048
     Dates: start: 20200416, end: 20200615
  4. HYDROCHLOROTHIAZIDE. [Concomitant]
     Active Substance: HYDROCHLOROTHIAZIDE
  5. CARTIA [Concomitant]
  6. DIABETIC VITAMINS [Concomitant]
  7. LOW DOSE COATED ASPIRIN [Concomitant]

REACTIONS (4)
  - Abdominal distension [None]
  - Recalled product administered [None]
  - Abdominal pain upper [None]
  - Diarrhoea [None]

NARRATIVE: CASE EVENT DATE: 20200416
